FAERS Safety Report 8843428 (Version 2)
Quarter: 2015Q3

REPORT INFORMATION
  Report Type: Report from Study
  Country: US (occurrence: US)
  Receive Date: 20121016
  Receipt Date: 20150817
  Transmission Date: 20151125
  Serious: Yes (Other)
  Sender: FDA-Public Use
  Company Number: US-ROCHE-1131777

PATIENT
  Age: 13 Year
  Sex: Female

DRUGS (5)
  1. NUTROPIN [Suspect]
     Active Substance: SOMATROPIN
     Indication: GROWTH HORMONE DEFICIENCY
     Dosage: AT BEDTIME
     Route: 058
  2. NUTROPIN [Suspect]
     Active Substance: SOMATROPIN
     Route: 058
  3. NUTROPIN [Suspect]
     Active Substance: SOMATROPIN
     Route: 058
  4. NUTROPIN [Suspect]
     Active Substance: SOMATROPIN
     Route: 058
  5. NUTROPIN [Suspect]
     Active Substance: SOMATROPIN
     Indication: DWARFISM
     Dosage: AT BEDTIME
     Route: 058
     Dates: start: 19990331

REACTIONS (6)
  - Bone deformity [Unknown]
  - Cough [Unknown]
  - Snoring [Unknown]
  - Arthralgia [Recovered/Resolved]
  - Pyrexia [Unknown]
  - Drug dose omission [Unknown]

NARRATIVE: CASE EVENT DATE: 20010719
